FAERS Safety Report 8477137-3 (Version None)
Quarter: 2012Q2

REPORT INFORMATION
  Report Type: 
  Country: None (occurrence: None)
  Receive Date: 20120629
  Receipt Date: 20120618
  Transmission Date: 20120825
  Serious: Yes (Death, Hospitalization)
  Sender: FDA-Public Use
  Company Number: US-CELGENEUS-163-22393-12042852

PATIENT
  Sex: Male

DRUGS (1)
  1. ISTODAX [Suspect]
     Indication: PERIPHERAL T-CELL LYMPHOMA UNSPECIFIED
     Dosage: 14 MILLIGRAM/SQ. METER
     Route: 065
     Dates: start: 20120302

REACTIONS (3)
  - PERIPHERAL T-CELL LYMPHOMA UNSPECIFIED [None]
  - TREATMENT NONCOMPLIANCE [None]
  - SMALL INTESTINAL OBSTRUCTION [None]
